FAERS Safety Report 5643128-0 (Version None)
Quarter: 2008Q1

REPORT INFORMATION
  Report Type: 
  Country: None (occurrence: None)
  Receive Date: 20080228
  Receipt Date: 20080219
  Transmission Date: 20080703
  Serious: Yes (Other)
  Sender: FDA-Public Use
  Company Number: BR-ROCHE-504078

PATIENT
  Age: 24 Year
  Sex: Female
  Weight: 54 kg

DRUGS (1)
  1. ROACUTAN [Suspect]
     Indication: ACNE
     Route: 048
     Dates: start: 20070611, end: 20070601

REACTIONS (2)
  - NO ADVERSE EVENT [None]
  - PREGNANCY [None]
